FAERS Safety Report 9954158 (Version 1)
Quarter: 2014Q1

REPORT INFORMATION
  Report Type: Report from Study
  Country: US (occurrence: US)
  Receive Date: 20140304
  Receipt Date: 20140304
  Transmission Date: 20141002
  Serious: No
  Sender: FDA-Public Use
  Company Number: US-ABBVIE-13P-163-1076123-00

PATIENT
  Sex: Female
  Weight: 69.01 kg

DRUGS (1)
  1. HUMIRA [Suspect]
     Indication: RHEUMATOID ARTHRITIS
     Dates: start: 20130307

REACTIONS (5)
  - Anxiety [Recovered/Resolved]
  - Injection site pain [Not Recovered/Not Resolved]
  - Wrong technique in drug usage process [Unknown]
  - Incorrect dose administered [Unknown]
  - Joint swelling [Not Recovered/Not Resolved]
